FAERS Safety Report 25708641 (Version 1)
Quarter: 2025Q3

REPORT INFORMATION
  Report Type: Spontaneous
  Country: GB (occurrence: GB)
  Receive Date: 20250821
  Receipt Date: 20250821
  Transmission Date: 20251021
  Serious: Yes (Life-Threatening, Hospitalization, Other)
  Sender: USV PRIVATE LIMITED
  Company Number: None

PATIENT
  Age: 71 Year

DRUGS (1)
  1. ZOLEDRONIC ACID [Suspect]
     Active Substance: ZOLEDRONIC ACID
     Indication: Osteopenia

REACTIONS (1)
  - Adrenocortical insufficiency acute [Recovered/Resolved with Sequelae]

NARRATIVE: CASE EVENT DATE: 20241127
